FAERS Safety Report 23984750 (Version 1)
Quarter: 2024Q2

REPORT INFORMATION
  Report Type: Spontaneous
  Country: NL (occurrence: NL)
  Receive Date: 20240618
  Receipt Date: 20240618
  Transmission Date: 20240715
  Serious: Yes (Other)
  Sender: FDA-Public Use
  Company Number: NL-LRB-00967888

PATIENT
  Age: 86 Year
  Sex: Female

DRUGS (15)
  1. OXYCODONE HYDROCHLORIDE [Suspect]
     Active Substance: OXYCODONE HYDROCHLORIDE
     Indication: Analgesic therapy
     Dosage: 5 MILLIGRAM, ONCE A DAY (1 TABLET ONCE A DAY (DURING ADL))
     Route: 065
     Dates: start: 20240314, end: 20240402
  2. DURAGESIC [Suspect]
     Active Substance: FENTANYL
     Indication: Pain
     Dosage: 1 DOSAGE FORM, 3 TIMES A DAY (NEW PATCH EVERY 3 DAYS)
     Route: 065
     Dates: start: 20210308
  3. BIMATOPROSTA [Concomitant]
     Indication: Product used for unknown indication
     Dosage: EYE DROPS, 0.1 MG/ML (MILLIGRAM PER MILLILITER)
     Route: 065
  4. CARBOMER [Concomitant]
     Active Substance: CARBOMER
     Indication: Product used for unknown indication
     Dosage: EYE GEL, 2 MG/G (MILLIGRAM PER GRAM)
     Route: 065
  5. COSMETICS [Concomitant]
     Active Substance: COSMETICS
     Indication: Product used for unknown indication
     Dosage: CREAM
     Route: 065
  6. CHOLECALCIFEROL [Concomitant]
     Active Substance: CHOLECALCIFEROL
     Indication: Product used for unknown indication
     Dosage: TABLET, 5600 UNITS
     Route: 065
  7. GABAPENTIN [Concomitant]
     Active Substance: GABAPENTIN
     Indication: Product used for unknown indication
     Dosage: CAPSULE, 400 MG (MILLIGRAM)
     Route: 065
  8. GLICLAZIDE [Concomitant]
     Active Substance: GLICLAZIDE
     Indication: Product used for unknown indication
     Dosage: MODIFIED-RELEASE TABLET, 80 MG (MILLIGRAM)
     Route: 065
  9. INSULIN ASPART [Concomitant]
     Active Substance: INSULIN ASPART
     Indication: Product used for unknown indication
     Dosage: INJECTION FLUID, 100 UNITS/ML (UNITS PER MILLILITER)
     Route: 065
  10. INSULIN GLARGINE [Concomitant]
     Active Substance: INSULIN GLARGINE
     Indication: Product used for unknown indication
     Dosage: INJECTION FLUID, 100 UNITS/ML (UNITS PER MILLILITER)
     Route: 065
  11. Lidocaine vaselinecreme 3% FNA [Concomitant]
     Indication: Product used for unknown indication
     Dosage: CREAM FOR RECTAL USE, 30 MG/G (MILLIGRAM PER GRAM)
     Route: 065
  12. LOSARTAN POTASSIUM [Concomitant]
     Active Substance: LOSARTAN POTASSIUM
     Indication: Product used for unknown indication
     Dosage: FILM-COATED TABLET, 50 MG (MILLIGRAM)
     Route: 065
  13. METFORMIN [Concomitant]
     Active Substance: METFORMIN HYDROCHLORIDE
     Indication: Product used for unknown indication
     Dosage: MODIFIED-RELEASE TABLET, 1000 MG (MILLIGRAM)
     Route: 065
  14. POVIDON [Concomitant]
     Indication: Product used for unknown indication
     Dosage: EYE DROPS, 20 MG/ML (MILLIGRAM PER MILLILITER)
     Route: 065
  15. VERAPAMIL [Concomitant]
     Active Substance: VERAPAMIL HYDROCHLORIDE
     Indication: Product used for unknown indication
     Dosage: MODIFIED-RELEASE TABLET, 240 MG (MILLIGRAM)
     Route: 065

REACTIONS (1)
  - Delirium [Recovered/Resolved]

NARRATIVE: CASE EVENT DATE: 20240318
